FAERS Safety Report 5199564-2 (Version None)
Quarter: 2007Q1

REPORT INFORMATION
  Report Type: 
  Country: None (occurrence: None)
  Receive Date: 20070102
  Receipt Date: 20070102
  Transmission Date: 20070707
  Serious: Yes (Other)
  Sender: FDA-Public Use
  Company Number: None

PATIENT
  Age: 54 Year
  Sex: Female

DRUGS (4)
  1. GAMMAGARD [Suspect]
     Dosage: TOTAL DOSE IS 15 GRAMS   MONTHLY  IV
     Route: 042
     Dates: start: 20061228
  2. GAMMAGARD [Suspect]
     Dates: start: 20061228
  3. AVALIDE/HCTZ [Concomitant]
  4. ZYRTEC [Concomitant]

REACTIONS (1)
  - INFUSION RELATED REACTION [None]
